FAERS Safety Report 13201498 (Version 1)
Quarter: 2017Q1

REPORT INFORMATION
  Report Type: Spontaneous
  Country: US (occurrence: US)
  Receive Date: 20170208
  Receipt Date: 20170208
  Transmission Date: 20170428
  Serious: No
  Sender: FDA-Public Use
  Company Number: US-AMGEN-USASP2016069001

PATIENT

DRUGS (3)
  1. CYTOXAN [Concomitant]
     Active Substance: CYCLOPHOSPHAMIDE
     Indication: INTRADUCTAL PROLIFERATIVE BREAST LESION
     Dosage: UNK
     Dates: start: 20150903
  2. TAXOTERE [Concomitant]
     Active Substance: DOCETAXEL
     Indication: INTRADUCTAL PROLIFERATIVE BREAST LESION
     Dosage: UNK
     Dates: start: 20150903
  3. NEULASTA [Suspect]
     Active Substance: PEGFILGRASTIM
     Indication: PRODUCT USED FOR UNKNOWN INDICATION
     Dosage: UNK
     Route: 065

REACTIONS (18)
  - Parosmia [Unknown]
  - Diarrhoea [Unknown]
  - Dysgeusia [Unknown]
  - Myalgia [Unknown]
  - Fatigue [Unknown]
  - Dyschezia [Unknown]
  - Headache [Unknown]
  - Constipation [Unknown]
  - Nausea [Unknown]
  - Bone pain [Unknown]
  - Abdominal pain [Unknown]
  - Insomnia [Unknown]
  - Hyperhidrosis [Unknown]
  - Oropharyngeal pain [Unknown]
  - Alopecia [Unknown]
  - Urticaria [Unknown]
  - Pyrexia [Unknown]
  - Emotional disorder [Unknown]
